FAERS Safety Report 6506344-1 (Version None)
Quarter: 2009Q4

REPORT INFORMATION
  Report Type: 
  Country: None (occurrence: None)
  Receive Date: 20091218
  Receipt Date: 20091208
  Transmission Date: 20100525
  Serious: Yes (Other)
  Sender: FDA-Public Use
  Company Number: US-BAYER-200920279NA

PATIENT
  Age: 56 Year
  Sex: Female

DRUGS (18)
  1. MAGNEVIST [Suspect]
     Indication: NUCLEAR MAGNETIC RESONANCE IMAGING
  2. OMNISCAN [Suspect]
     Indication: NUCLEAR MAGNETIC RESONANCE IMAGING
  3. OPTIMARK [Suspect]
     Indication: NUCLEAR MAGNETIC RESONANCE IMAGING ABDOMINAL
     Dates: start: 20060822, end: 20060822
  4. OPTIMARK [Suspect]
     Dates: start: 20060821, end: 20060821
  5. RENAGEL [Concomitant]
     Dosage: TOTAL DAILY DOSE: 4800 MG  UNIT DOSE: 800 MG
     Route: 048
  6. NEPHRO-VITE [Concomitant]
  7. FOLIC ACID [Concomitant]
  8. SENSIPAR [Concomitant]
     Dosage: TOTAL DAILY DOSE: 30 MG
     Route: 048
  9. PROTONIX [Concomitant]
  10. AMBIEN [Concomitant]
  11. TRACLEER [Concomitant]
     Indication: PULMONARY HYPERTENSION
     Dosage: TOTAL DAILY DOSE: 125 MG  UNIT DOSE: 62.5 MG
     Route: 048
     Dates: start: 20070514
  12. EPOGEN [Concomitant]
  13. DARVOCET [Concomitant]
     Indication: PAIN
  14. VIAGRA [Concomitant]
     Indication: PULMONARY HYPERTENSION
  15. OMNIPAGUE 350 [Concomitant]
     Indication: ANGIOGRAM PULMONARY NORMAL
     Route: 042
     Dates: start: 20040317, end: 20040317
  16. OMNIPAGUE 350 [Concomitant]
     Route: 042
     Dates: start: 20040414
  17. OMNIPAGUE 350 [Concomitant]
     Route: 042
     Dates: start: 20041210, end: 20041210
  18. VISIPAQUE [Concomitant]
     Indication: DIALYSIS
     Route: 042
     Dates: start: 20040419, end: 20040419

REACTIONS (26)
  - DRY SKIN [None]
  - DYSAESTHESIA [None]
  - DYSPNOEA [None]
  - EXTREMITY CONTRACTURE [None]
  - FIBROSIS [None]
  - HYPERAESTHESIA [None]
  - INSOMNIA [None]
  - JOINT LOCK [None]
  - JOINT RANGE OF MOTION DECREASED [None]
  - MOBILITY DECREASED [None]
  - MORPHOEA [None]
  - MUSCULAR WEAKNESS [None]
  - NEPHROGENIC SYSTEMIC FIBROSIS [None]
  - OEDEMA PERIPHERAL [None]
  - PAIN [None]
  - PAIN IN EXTREMITY [None]
  - RASH PRURITIC [None]
  - RESPIRATORY FAILURE [None]
  - SKIN DISORDER [None]
  - SKIN FIBROSIS [None]
  - SKIN FISSURES [None]
  - SKIN HYPERPIGMENTATION [None]
  - SKIN HYPERTROPHY [None]
  - SKIN INDURATION [None]
  - SKIN TIGHTNESS [None]
  - VENOUS INSUFFICIENCY [None]
